FAERS Safety Report 8014648-9 (Version None)
Quarter: 2011Q4

REPORT INFORMATION
  Report Type: 
  Country: None (occurrence: None)
  Receive Date: 20111229
  Receipt Date: 20111220
  Transmission Date: 20120403
  Serious: Yes (Hospitalization, Other)
  Sender: FDA-Public Use
  Company Number: US-ASTRAZENECA-2010SE42649

PATIENT
  Age: 52 Year
  Sex: Female

DRUGS (3)
  1. NEXIUM [Suspect]
     Route: 048
  2. BAKING SODA [Concomitant]
  3. GAS PILLS [Concomitant]

REACTIONS (6)
  - BACK INJURY [None]
  - INTENTIONAL DRUG MISUSE [None]
  - MALAISE [None]
  - PNEUMONIA [None]
  - MYOCARDIAL INFARCTION [None]
  - DRUG DOSE OMISSION [None]
